FAERS Safety Report 21423402 (Version 1)
Quarter: 2022Q4

REPORT INFORMATION
  Report Type: Spontaneous
  Country: RO (occurrence: RO)
  Receive Date: 20221007
  Receipt Date: 20221007
  Transmission Date: 20230113
  Serious: Yes (Other)
  Sender: FDA-Public Use
  Company Number: RO-UCBSA-2018054828

PATIENT
  Age: 44 Year
  Sex: Female

DRUGS (7)
  1. LEVETIRACETAM [Suspect]
     Active Substance: LEVETIRACETAM
     Indication: Seizure
     Dosage: 1000 MG, ONCE DAILY (QD)
  2. VALPROATE SODIUM [Suspect]
     Active Substance: VALPROATE SODIUM
     Indication: Epilepsy
     Dosage: 1500 MG, ONCE DAILY (QD)
     Dates: end: 20010212
  3. CLONAZEPAM [Suspect]
     Active Substance: CLONAZEPAM
     Indication: Behaviour disorder
     Dosage: 6 MILLIGRAM/DAY
  4. CLONAZEPAM [Suspect]
     Active Substance: CLONAZEPAM
     Indication: Seizure
     Dosage: 2000 MG, ONCE DAILY (QD)
  5. CARBAMAZEPINE [Suspect]
     Active Substance: CARBAMAZEPINE
     Indication: Seizure
     Dosage: 600 MILLIGRAM/DAY
  6. CARBAMAZEPINE [Suspect]
     Active Substance: CARBAMAZEPINE
     Dosage: 800 MG, ONCE DAILY (QD)
  7. LAMOTRIGINE [Concomitant]
     Active Substance: LAMOTRIGINE
     Indication: Parkinsonism
     Dosage: 400 MILLIGRAM/DAY

REACTIONS (7)
  - Suicide attempt [Unknown]
  - Epilepsy [Unknown]
  - Mental disorder [Unknown]
  - Parkinsonism [Recovering/Resolving]
  - Multiple-drug resistance [Unknown]
  - Behaviour disorder [Unknown]
  - Vagal nerve stimulator implantation [Unknown]
